FAERS Safety Report 10263751 (Version 1)
Quarter: 2014Q2

REPORT INFORMATION
  Report Type: Spontaneous
  Country: US (occurrence: US)
  Receive Date: 20140627
  Receipt Date: 20140627
  Transmission Date: 20141212
  Serious: No
  Sender: FDA-Public Use
  Company Number: US-AMGEN-USASP2014047080

PATIENT
  Age: 56 Year
  Sex: Female

DRUGS (1)
  1. ENBREL [Suspect]
     Indication: RHEUMATOID ARTHRITIS
     Dosage: 50 MG, WEEKLY
     Route: 065
     Dates: start: 20140307, end: 20140523

REACTIONS (4)
  - Neuralgia [Not Recovered/Not Resolved]
  - Breast pain [Not Recovered/Not Resolved]
  - Adverse event [Not Recovered/Not Resolved]
  - Therapeutic response decreased [Not Recovered/Not Resolved]
